FAERS Safety Report 9549947 (Version 1)
Quarter: 2013Q3

REPORT INFORMATION
  Report Type: Report from Study
  Country: BR (occurrence: BR)
  Receive Date: 20130924
  Receipt Date: 20130924
  Transmission Date: 20140515
  Serious: Yes (Death)
  Sender: FDA-Public Use
  Company Number: ALCN2012BR004728

PATIENT
  Age: 80 Year
  Sex: Male
  Weight: 69 kg

DRUGS (3)
  1. DUOTRAV [Suspect]
     Indication: GLAUCOMA
     Route: 047
     Dates: end: 20120823
  2. AZOPT [Suspect]
     Indication: GLAUCOMA
     Route: 047
  3. ASPIRIN [Concomitant]
     Route: 048
     Dates: start: 2011, end: 20120823

REACTIONS (1)
  - Death [Fatal]
